FAERS Safety Report 5664296-0 (Version None)
Quarter: 2008Q1

REPORT INFORMATION
  Report Type: 
  Country: None (occurrence: None)
  Receive Date: 20080314
  Receipt Date: 20080307
  Transmission Date: 20080703
  Serious: Yes (Life-Threatening, Hospitalization)
  Sender: FDA-Public Use
  Company Number: PHHO2004BR09351

PATIENT
  Age: 74 Year
  Sex: Male
  Weight: 63.3 kg

DRUGS (7)
  1. VALSARTAN [Suspect]
     Indication: CARDIOVASCULAR DISORDER
     Dosage: LEVEL 1
     Route: 048
     Dates: start: 20021002, end: 20061016
  2. VALSARTAN [Suspect]
     Dosage: LEVEL 2
     Route: 048
     Dates: start: 20020216, end: 20060127
  3. VALSARTAN [Suspect]
     Dosage: NO TREATMENT
     Dates: start: 20060128
  4. NATEGLINIDE [Suspect]
     Indication: TYPE 2 DIABETES MELLITUS
     Dosage: LEVEL 1
     Route: 048
     Dates: start: 20021002, end: 20021016
  5. NATEGLINIDE [Suspect]
     Dosage: LEVEL 2
     Route: 048
     Dates: start: 20021016, end: 20060127
  6. NATEGLINIDE [Suspect]
     Dosage: NO TREATMENT
     Dates: start: 20060128
  7. AMLODIPINE [Concomitant]
     Indication: HYPERTENSION

REACTIONS (21)
  - ANAEMIA [None]
  - ANGINA PECTORIS [None]
  - ANGIODYSPLASIA [None]
  - ARTERIOVENOUS MALFORMATION [None]
  - ASTHENIA [None]
  - CHEST PAIN [None]
  - COLONIC POLYP [None]
  - CONCOMITANT DISEASE PROGRESSION [None]
  - DIVERTICULUM INTESTINAL [None]
  - ENTERECTOMY [None]
  - EPISTAXIS [None]
  - FAECES DISCOLOURED [None]
  - GASTRITIS [None]
  - GASTRITIS EROSIVE [None]
  - GASTROINTESTINAL ARTERIOVENOUS MALFORMATION [None]
  - GASTROINTESTINAL HAEMORRHAGE [None]
  - HAEMATOMA [None]
  - HAEMOSTASIS [None]
  - HYPERHIDROSIS [None]
  - HYPERTENSION [None]
  - SMALL INTESTINAL HAEMORRHAGE [None]
